FAERS Safety Report 10430247 (Version 2)
Quarter: 2014Q4

REPORT INFORMATION
  Report Type: Report from Study
  Country: US (occurrence: US)
  Receive Date: 20140904
  Receipt Date: 20141017
  Transmission Date: 20150528
  Serious: Yes (Other)
  Sender: FDA-Public Use
  Company Number: US-SA-2014SA119023

PATIENT
  Age: 61 Year
  Sex: Female

DRUGS (2)
  1. LANTUS SOLOSTAR [Suspect]
     Active Substance: INSULIN GLARGINE
     Indication: DIABETES MELLITUS
     Dosage: DOSE: 100 UNITS AT NIGHT ONLY DOSE:100 UNIT(S)
     Route: 065
  2. SOLOSTAR [Concomitant]
     Active Substance: DEVICE

REACTIONS (1)
  - Cerebrovascular accident [Recovered/Resolved]
